FAERS Safety Report 8223690-4 (Version None)
Quarter: 2012Q1

REPORT INFORMATION
  Report Type: 
  Country: None (occurrence: None)
  Receive Date: 20120316
  Receipt Date: 20120309
  Transmission Date: 20120608
  Serious: Yes (Hospitalization)
  Sender: FDA-Public Use
  Company Number: WAES 1112DEU00078

PATIENT
  Age: 41 Year
  Sex: Male

DRUGS (2)
  1. RALTEGRAVIR [Suspect]
     Indication: HIV INFECTION
     Dosage: 400 MG/BID PO
     Route: 048
     Dates: start: 20100901
  2. EMTRICITABINE + TENOFOVIR DISOPROXIL FUM [Concomitant]

REACTIONS (3)
  - CALCULUS URETERIC [None]
  - HYDRONEPHROSIS [None]
  - URINARY TRACT INFECTION STAPHYLOCOCCAL [None]
